FAERS Safety Report 13058225 (Version 1)
Quarter: 2016Q4

REPORT INFORMATION
  Report Type: Spontaneous
  Country: DE (occurrence: DE)
  Receive Date: 20161223
  Receipt Date: 20161223
  Transmission Date: 20170207
  Serious: Yes (Hospitalization, Other)
  Sender: FDA-Public Use
  Company Number: DE-DRREDDYS-USA/GER/16/0085732

PATIENT
  Age: 60 Year
  Sex: Female

DRUGS (1)
  1. METOPROLOL. [Suspect]
     Active Substance: METOPROLOL
     Indication: HYPERTENSION
     Route: 065

REACTIONS (15)
  - Pyrexia [Recovering/Resolving]
  - Rash [Recovering/Resolving]
  - Fatigue [Recovering/Resolving]
  - Antinuclear antibody positive [Recovering/Resolving]
  - Blood bilirubin increased [Recovering/Resolving]
  - Hepatocellular injury [Recovering/Resolving]
  - Hypersensitivity [Recovering/Resolving]
  - Myalgia [Recovering/Resolving]
  - International normalised ratio increased [Recovering/Resolving]
  - Transaminases increased [Recovering/Resolving]
  - Lymphadenopathy [Recovering/Resolving]
  - Eosinophilia [Recovering/Resolving]
  - Jaundice [Recovering/Resolving]
  - Arthralgia [Recovering/Resolving]
  - Abdominal pain [Recovering/Resolving]
